FAERS Safety Report 14520663 (Version 2)
Quarter: 2019Q1

REPORT INFORMATION
  Report Type: Report from Study
  Country: US (occurrence: US)
  Receive Date: 20180212
  Receipt Date: 20190215
  Transmission Date: 20190417
  Serious: Yes (Hospitalization, Other)
  Sender: FDA-Public Use
  Company Number: US-AMAG PHARMACEUTICALS, INC.-AMAG201703224

PATIENT

DRUGS (1)
  1. MAKENA [Suspect]
     Active Substance: HYDROXYPROGESTERONE CAPROATE
     Indication: FOETAL EXPOSURE DURING PREGNANCY
     Dosage: 250 MG/ML, WEEKLY
     Route: 064
     Dates: start: 20170811, end: 20170906

REACTIONS (4)
  - Premature baby [Unknown]
  - Foetal heart rate abnormal [Recovered/Resolved]
  - Meconium in amniotic fluid [Recovered/Resolved]
  - Foetal biophysical profile score abnormal [Recovered/Resolved]

NARRATIVE: CASE EVENT DATE: 20171009
